FAERS Safety Report 7921071-1 (Version None)
Quarter: 2011Q4

REPORT INFORMATION
  Report Type: 
  Country: None (occurrence: None)
  Receive Date: 20111117
  Receipt Date: 20111114
  Transmission Date: 20120403
  Serious: Yes (Hospitalization, Disabling, Other)
  Sender: FDA-Public Use
  Company Number: US-MERCK-1110USA02742

PATIENT
  Age: 67 Year
  Sex: Female

DRUGS (9)
  1. AZOR (ALPRAZOLAM) [Concomitant]
     Indication: HYPERTENSION
     Route: 065
     Dates: start: 20100101, end: 20110101
  2. FOSAMAX [Suspect]
     Route: 048
     Dates: start: 20010401, end: 20030801
  3. VITAMIN E [Concomitant]
     Route: 065
     Dates: start: 19980101, end: 20100101
  4. FOSAMAX [Suspect]
     Indication: OSTEOPOROSIS
     Route: 048
     Dates: start: 20040201, end: 20110101
  5. FOSAMAX [Suspect]
     Route: 048
     Dates: start: 20010401, end: 20030801
  6. PREVACID [Concomitant]
     Route: 065
     Dates: start: 20000101, end: 20110101
  7. FUROSEMIDE [Concomitant]
     Indication: HYPERTENSION
     Route: 065
     Dates: start: 20070101, end: 20100101
  8. PROCARDIA [Concomitant]
     Indication: HYPERTENSION
     Route: 065
     Dates: start: 19940101, end: 20070101
  9. FOSAMAX [Suspect]
     Indication: HOT FLUSH
     Route: 048
     Dates: start: 20040201, end: 20110101

REACTIONS (8)
  - FEMUR FRACTURE [None]
  - BLOOD CHOLESTEROL INCREASED [None]
  - LOW TURNOVER OSTEOPATHY [None]
  - CARDIAC DISORDER [None]
  - OFF LABEL USE [None]
  - VITAMIN D DEFICIENCY [None]
  - CHEST PAIN [None]
  - HERPES ZOSTER [None]
